FAERS Safety Report 10415934 (Version 1)
Quarter: 2014Q3

REPORT INFORMATION
  Report Type: Spontaneous
  Country: AU (occurrence: None)
  Receive Date: 20140826
  Receipt Date: 20140826
  Transmission Date: 20150326
  Serious: Yes (Hospitalization)
  Sender: FDA-Public Use
  Company Number: IPC201408-000429

PATIENT
  Age: 83 Year
  Sex: Female

DRUGS (12)
  1. SERETIDE [Suspect]
     Active Substance: FLUTICASONE FUROATE\SALMETEROL XINAFOATE
     Dosage: 250 INHALER
     Route: 055
  2. NITROLINGUAL [Suspect]
     Active Substance: NITROGLYCERIN
  3. ASPIRIN (ASPIRIN) [Suspect]
     Active Substance: ASPIRIN
  4. METOPROLOL TARTRATE. [Suspect]
     Active Substance: METOPROLOL TARTRATE
  5. RAMIPRIL (RAMIPRIL) [Suspect]
     Active Substance: RAMIPRIL
  6. TIOTROPIUM (TIOTROPIUM) (TIOTROPIUM) [Suspect]
     Active Substance: TIOTROPIUM
  7. PROPYLTHIOURACIL. [Suspect]
     Active Substance: PROPYLTHIOURACIL
  8. SIMVASTATIN (SIMVASTATIN) [Suspect]
     Active Substance: SIMVASTATIN
  9. CLARITHROMYCIN (CLARITHROMYCIN) [Suspect]
     Active Substance: CLARITHROMYCIN
     Indication: LOWER RESPIRATORY TRACT INFECTION
  10. CLARITHROMYCIN (CLARITHROMYCIN) [Suspect]
     Active Substance: CLARITHROMYCIN
     Indication: ASTHMA
  11. EZETIMIBE (EZETIMIBE) (TABLET) [Suspect]
     Active Substance: EZETIMIBE
  12. VENTOLIN [Suspect]
     Active Substance: ALBUTEROL SULFATE

REACTIONS (8)
  - Oedema peripheral [None]
  - Rhabdomyolysis [None]
  - Troponin T increased [None]
  - Blood potassium decreased [None]
  - Blood phosphorus decreased [None]
  - Bedridden [None]
  - Dysstasia [None]
  - Creatinine renal clearance decreased [None]
